FAERS Safety Report 15336360 (Version 2)
Quarter: 2018Q3

REPORT INFORMATION
  Report Type: Spontaneous
  Country: DE (occurrence: DE)
  Receive Date: 20180830
  Receipt Date: 20180907
  Transmission Date: 20181010
  Serious: Yes (Hospitalization)
  Sender: FDA-Public Use
  Company Number: PHHY2018DE080785

PATIENT
  Sex: Male

DRUGS (20)
  1. CAPECITABINE. [Suspect]
     Active Substance: CAPECITABINE
     Indication: PRODUCT USED FOR UNKNOWN INDICATION
     Route: 048
  2. AMLODIPINE [Concomitant]
     Active Substance: AMLODIPINE BESYLATE
     Indication: HYPERTENSION
     Dosage: 10 MG, QD (5 MG, BID)
     Route: 065
     Dates: start: 20180711
  3. PEGFILGRASTIM [Suspect]
     Active Substance: PEGFILGRASTIM
     Indication: B-CELL LYMPHOMA
     Dosage: 6 MG, QD (1 IN 1 D)
     Route: 058
     Dates: start: 20180714
  4. VINCRISTINE [Suspect]
     Active Substance: VINCRISTINE
     Indication: B-CELL LYMPHOMA
     Dosage: 3 MG, QD (1 IN 1 D)
     Route: 042
     Dates: start: 20180711
  5. RITUXIMAB. [Suspect]
     Active Substance: RITUXIMAB
     Indication: B-CELL LYMPHOMA
     Dosage: 798 MG, QD (1 IN 1 D)
     Route: 042
     Dates: start: 20180712
  6. VINCRISTINE [Suspect]
     Active Substance: VINCRISTINE
     Dosage: 94 MG, QD (1 IN 1 D)
     Route: 042
     Dates: start: 20180711
  7. PREDNISONE. [Suspect]
     Active Substance: PREDNISONE
     Indication: B-CELL LYMPHOMA
     Dosage: 100 MG, UNK (5X FOR 5 DAY)
     Route: 048
     Dates: start: 20180711
  8. CANDESARTAN. [Concomitant]
     Active Substance: CANDESARTAN
     Indication: CARDIAC FAILURE
     Dosage: 16 MG, BID (32 MG, QD)
     Route: 048
  9. PIPERACILIN/TAZOBACTAM [Concomitant]
     Active Substance: PIPERACILLIN SODIUM\TAZOBACTAM SODIUM
     Indication: PRODUCT USED FOR UNKNOWN INDICATION
     Dosage: 4.5 G, TID (13.5 G, QD)
     Route: 042
     Dates: start: 20180717
  10. AMPHOTERICIN B. [Concomitant]
     Active Substance: AMPHOTERICIN B
     Indication: INFECTION PROPHYLAXIS
     Dosage: 28 ML, QD (FOR 6 DAYS)
     Route: 042
     Dates: start: 20180711
  11. ASPIRIN. [Concomitant]
     Active Substance: ASPIRIN
     Indication: CORONARY ARTERY DISEASE
     Dosage: 100 MG, QD
     Route: 048
  12. CYCLOPHOSPHAMIDE. [Suspect]
     Active Substance: CYCLOPHOSPHAMIDE
     Indication: B-CELL LYMPHOMA
     Dosage: 1477 MG, QD (1 IN 1 D)
     Route: 042
     Dates: start: 20180711
  13. FILGRASTIM [Suspect]
     Active Substance: FILGRASTIM
     Indication: B-CELL LYMPHOMA
     Dosage: 6 MG, QD (1 IN 1 D)
     Route: 058
     Dates: start: 20180714
  14. FLUCONAZOLE. [Concomitant]
     Active Substance: FLUCONAZOLE
     Indication: ANTIFUNGAL TREATMENT
     Dosage: 400 MG, QD (200 MG, BID)
     Route: 048
     Dates: start: 20180711
  15. DOXORUBICINE [Suspect]
     Active Substance: DOXORUBICIN
     Indication: B-CELL LYMPHOMA
     Dosage: 50 MG, QD (1 IN 1 D)
     Route: 042
     Dates: start: 20180711
  16. DOXORUBICINE [Suspect]
     Active Substance: DOXORUBICIN
     Dosage: 88 MG, QD (1 IN 1 D)
     Route: 042
     Dates: start: 20180711
  17. BEVACIZUMAB. [Suspect]
     Active Substance: BEVACIZUMAB
     Indication: PRODUCT USED FOR UNKNOWN INDICATION
     Dosage: UNK
     Route: 042
  18. PREDNISONE. [Suspect]
     Active Substance: PREDNISONE
     Dosage: 100 MG, UNK (5X FOR 5 DAY)
     Route: 048
     Dates: start: 20180715
  19. RITUXIMAB. [Suspect]
     Active Substance: RITUXIMAB
     Dosage: 75 MG, QD (1 IN 1 D)
     Route: 042
     Dates: start: 20180712
  20. CYCLOPHOSPHAMIDE. [Suspect]
     Active Substance: CYCLOPHOSPHAMIDE
     Dosage: 50 MG, 1 IN 1 D
     Route: 042
     Dates: start: 20180711

REACTIONS (5)
  - Pyrexia [Unknown]
  - Epilepsy [Unknown]
  - Off label use [Unknown]
  - Syncope [Unknown]
  - Chills [Unknown]

NARRATIVE: CASE EVENT DATE: 201807
